FAERS Safety Report 10062647 (Version 1)
Quarter: 2014Q2

REPORT INFORMATION
  Report Type: Spontaneous
  Country: AU (occurrence: AU)
  Receive Date: 20140407
  Receipt Date: 20140407
  Transmission Date: 20141212
  Serious: Yes (Other)
  Sender: FDA-Public Use
  Company Number: AU-PERRIGO-14AU003314

PATIENT
  Sex: Female

DRUGS (8)
  1. ACETAMINOPHEN 650MG ER 544 [Suspect]
     Indication: ANALGESIC THERAPY
     Dosage: 1 GRAM, AT 6, 12 AND 18 HOURS
     Route: 048
  2. PARECOXIB [Suspect]
     Indication: ANALGESIC THERAPY
     Dosage: 40 MG, SINGLE
     Route: 042
  3. CELECOXIB [Suspect]
     Indication: ANALGESIC THERAPY
     Dosage: 400 MG AT 12 HOURS
     Route: 048
  4. ACETAMINOPHEN [Suspect]
     Indication: ANALGESIC THERAPY
     Dosage: 2 G, SINGLE
     Route: 042
  5. BUPIVACAINE [Concomitant]
     Indication: ANAESTHESIA
     Route: 008
  6. FENTANYL [Concomitant]
     Indication: ANAESTHESIA
     Route: 008
  7. NITROUS OXIDE [Concomitant]
     Indication: ANAESTHESIA
     Route: 055
  8. PETHIDINE [Concomitant]
     Indication: ANALGESIC THERAPY
     Route: 008

REACTIONS (1)
  - Urinary retention [Unknown]
